FAERS Safety Report 4819492-9 (Version None)
Quarter: 2005Q4

REPORT INFORMATION
  Report Type: 
  Country: None (occurrence: None)
  Receive Date: 20051031
  Receipt Date: 20050628
  Transmission Date: 20060501
  Serious: No
  Sender: FDA-Public Use
  Company Number: 2005PV000170

PATIENT
  Sex: Female
  Weight: 58.9676 kg

DRUGS (7)
  1. SYMLIN [Suspect]
     Indication: DIABETES MELLITUS INSULIN-DEPENDENT
     Dosage: 15 UG; BID; SC
     Route: 058
     Dates: start: 20050613
  2. LIPITOR [Concomitant]
  3. ASPIRIN [Concomitant]
  4. LISINOPRIL [Concomitant]
  5. SYNTHROID [Concomitant]
  6. MOBIC [Concomitant]
  7. NOVOLOG [Concomitant]

REACTIONS (3)
  - HAEMORRHAGE [None]
  - SCAR [None]
  - SKIN LACERATION [None]
